FAERS Safety Report 5323736-7 (Version None)
Quarter: 2007Q2

REPORT INFORMATION
  Report Type: 
  Country: None (occurrence: None)
  Receive Date: 20070220
  Receipt Date: 20070117
  Transmission Date: 20071010
  Serious: No
  Sender: FDA-Public Use
  Company Number: WAES 0701USA02439

PATIENT
  Age: 66 Year
  Sex: Male

DRUGS (3)
  1. JANUVIA [Suspect]
     Indication: DIABETES MELLITUS NON-INSULIN-DEPENDENT
     Dosage: 100MG;DAILY;PO
     Route: 048
     Dates: start: 20061220, end: 20070116
  2. GLIPIZIDE [Concomitant]
  3. METFORMIN HCL [Concomitant]

REACTIONS (3)
  - DIPLOPIA [None]
  - EYE PAIN [None]
  - LACRIMATION INCREASED [None]
